FAERS Safety Report 10903466 (Version 1)
Quarter: 2015Q1

REPORT INFORMATION
  Report Type: Spontaneous
  Country: US (occurrence: US)
  Receive Date: 20150311
  Receipt Date: 20150311
  Transmission Date: 20150721
  Serious: Yes (Hospitalization, Other)
  Sender: FDA-Public Use
  Company Number: US-AUROBINDO-AUR-APL-2015-01930

PATIENT
  Sex: Male

DRUGS (19)
  1. METFORMIN [Suspect]
     Active Substance: METFORMIN HYDROCHLORIDE
     Indication: PRODUCT USED FOR UNKNOWN INDICATION
     Dosage: UNK
     Route: 048
  2. VICTOZA [Suspect]
     Active Substance: LIRAGLUTIDE
     Indication: PRODUCT USED FOR UNKNOWN INDICATION
     Dosage: UNK
     Route: 048
  3. BUPIVACAINE HYDROCHLORIDE. [Suspect]
     Active Substance: BUPIVACAINE HYDROCHLORIDE
     Indication: PRODUCT USED FOR UNKNOWN INDICATION
     Dosage: 7.257 MG, DAILY
     Route: 037
  4. BACLOFEN. [Suspect]
     Active Substance: BACLOFEN
     Dosage: DRUG CONCENTRATION CHANGE
     Route: 037
     Dates: start: 20140513
  5. FLUTICASONE [Suspect]
     Active Substance: FLUTICASONE\FLUTICASONE PROPIONATE
     Indication: PRODUCT USED FOR UNKNOWN INDICATION
     Dosage: UNK
     Route: 048
  6. PRAVASTATIN [Suspect]
     Active Substance: PRAVASTATIN\PRAVASTATIN SODIUM
     Indication: PRODUCT USED FOR UNKNOWN INDICATION
     Dosage: UNK
     Route: 048
  7. BENZONATATE. [Suspect]
     Active Substance: BENZONATATE
     Indication: PRODUCT USED FOR UNKNOWN INDICATION
     Dosage: UNK
     Route: 048
  8. LOSARTAN [Suspect]
     Active Substance: LOSARTAN
     Indication: PRODUCT USED FOR UNKNOWN INDICATION
     Dosage: UNK
     Route: 048
  9. PANTOPRAZOLE [Suspect]
     Active Substance: PANTOPRAZOLE SODIUM
     Indication: PRODUCT USED FOR UNKNOWN INDICATION
     Dosage: UNK
     Route: 048
  10. BACLOFEN. [Suspect]
     Active Substance: BACLOFEN
     Indication: PRODUCT USED FOR UNKNOWN INDICATION
     Dosage: UNK
     Route: 048
  11. BUPIVACAINE HYDROCHLORIDE. [Suspect]
     Active Substance: BUPIVACAINE HYDROCHLORIDE
     Dosage: DRUG CONCENTRATION CHANGE
     Route: 037
     Dates: start: 20140513
  12. ALLEGRA [Suspect]
     Active Substance: FEXOFENADINE HYDROCHLORIDE
     Indication: PRODUCT USED FOR UNKNOWN INDICATION
     Dosage: UNK
     Route: 048
  13. CLONIDINE. [Suspect]
     Active Substance: CLONIDINE
     Indication: PRODUCT USED FOR UNKNOWN INDICATION
     Dosage: 589.7 ?G, DAILY
     Route: 037
  14. CLONIDINE. [Suspect]
     Active Substance: CLONIDINE
     Dosage: DRUG CONCENTRATION CHANGE
     Route: 037
     Dates: start: 20140513
  15. FENOFIBRATE. [Suspect]
     Active Substance: FENOFIBRATE
     Indication: PRODUCT USED FOR UNKNOWN INDICATION
     Dosage: UNK
     Route: 048
  16. SUFENTANIL [Suspect]
     Active Substance: SUFENTANIL
     Dosage: DRUG CONCENTRATION CHANGE
     Route: 037
     Dates: start: 20140513
  17. SUFENTANIL [Suspect]
     Active Substance: SUFENTANIL
     Indication: PRODUCT USED FOR UNKNOWN INDICATION
     Dosage: 24.9 ?G, DAILY
     Route: 037
  18. CITALOPRAM TABLET [Suspect]
     Active Substance: CITALOPRAM HYDROBROMIDE
     Indication: PRODUCT USED FOR UNKNOWN INDICATION
     Dosage: UNK
     Route: 048
  19. BACLOFEN. [Suspect]
     Active Substance: BACLOFEN
     Indication: PAIN
     Dosage: 27.21 ?G, DAILY
     Route: 037

REACTIONS (9)
  - Underdose [Recovered/Resolved]
  - Radicular pain [Recovered/Resolved]
  - Back pain [Recovered/Resolved]
  - Tremor [Recovered/Resolved]
  - Post laminectomy syndrome [Recovered/Resolved]
  - Therapeutic response decreased [Recovered/Resolved]
  - Drug withdrawal syndrome [Recovered/Resolved]
  - Feeling cold [Recovered/Resolved]
  - Condition aggravated [Recovered/Resolved]
